FAERS Safety Report 8282395-4 (Version None)
Quarter: 2012Q2

REPORT INFORMATION
  Report Type: 
  Country: None (occurrence: None)
  Receive Date: 20120413
  Receipt Date: 20120403
  Transmission Date: 20120825
  Serious: Yes (Other)
  Sender: FDA-Public Use
  Company Number: AR-AMGEN-ARGSP2012007982

PATIENT
  Age: 78 Year
  Sex: Female

DRUGS (3)
  1. FOLIC ACID [Concomitant]
     Dosage: UNK
     Route: 048
  2. METHOTREXATE [Concomitant]
     Dosage: UNK
     Route: 048
  3. ENBREL [Suspect]
     Indication: RHEUMATOID ARTHRITIS
     Dosage: 50 MG, WEEKLY
     Route: 058
     Dates: start: 20070410, end: 20120101

REACTIONS (3)
  - HEADACHE [None]
  - VOMITING [None]
  - RHEUMATOID ARTHRITIS [None]
